FAERS Safety Report 23307999 (Version 3)
Quarter: 2024Q3

REPORT INFORMATION
  Report Type: Spontaneous
  Country: US (occurrence: US)
  Receive Date: 20231218
  Receipt Date: 20240911
  Transmission Date: 20241017
  Serious: Yes (Hospitalization)
  Sender: CSL BEHRING
  Company Number: US-BEH-2023166282

PATIENT
  Sex: Female

DRUGS (2)
  1. HIZENTRA [Suspect]
     Active Substance: HUMAN IMMUNOGLOBULIN G
     Indication: Asthma
     Dosage: 18 GRAM, QW
     Route: 058
  2. HIZENTRA [Suspect]
     Active Substance: HUMAN IMMUNOGLOBULIN G
     Dosage: 18 GRAM, QW
     Route: 058

REACTIONS (9)
  - Colectomy [Unknown]
  - Nasal congestion [Unknown]
  - Cough [Unknown]
  - Illness [Unknown]
  - Hypophagia [Unknown]
  - Nausea [Unknown]
  - Therapy interrupted [Unknown]
  - Therapy interrupted [Unknown]
  - Off label use [Unknown]
